FAERS Safety Report 12451312 (Version 1)
Quarter: 2016Q2

REPORT INFORMATION
  Report Type: Spontaneous
  Country: US (occurrence: US)
  Receive Date: 20160609
  Receipt Date: 20160609
  Transmission Date: 20160815
  Serious: Yes (Other)
  Sender: FDA-Public Use
  Company Number: US-ASTELLAS-2016US018140

PATIENT
  Sex: Female

DRUGS (1)
  1. VESICARE [Suspect]
     Active Substance: SOLIFENACIN SUCCINATE
     Indication: BLADDER DISORDER
     Route: 048
     Dates: end: 201605

REACTIONS (7)
  - Fall [Unknown]
  - Drug effect incomplete [Not Recovered/Not Resolved]
  - Nocturia [Not Recovered/Not Resolved]
  - Treatment noncompliance [Unknown]
  - Joint injury [Unknown]
  - Urinary incontinence [Not Recovered/Not Resolved]
  - Urinary tract infection [Unknown]
